FAERS Safety Report 5232052-3 (Version None)
Quarter: 2007Q1

REPORT INFORMATION
  Report Type: 
  Country: None (occurrence: None)
  Receive Date: 20061201
  Receipt Date: 20060825
  Transmission Date: 20070707
  Serious: No
  Sender: FDA-Public Use
  Company Number: US200608005821

PATIENT
  Sex: Female

DRUGS (5)
  1. CYMBALTA [Suspect]
     Dosage: 30 MG
     Dates: start: 20051201
  2. LOESTRIN 1.5/30 [Concomitant]
  3. ZYRTEC [Concomitant]
  4. PROTONIX [Concomitant]
  5. SKELAXIN [Concomitant]

REACTIONS (2)
  - DEPRESSED MOOD [None]
  - IRRITABILITY [None]
